FAERS Safety Report 13179280 (Version 2)
Quarter: 2018Q4

REPORT INFORMATION
  Report Type: Spontaneous
  Country: FR (occurrence: FR)
  Receive Date: 20170202
  Receipt Date: 20181016
  Transmission Date: 20190204
  Serious: Yes (Other)
  Sender: FDA-Public Use
  Company Number: FR-SA-2017SA016398

PATIENT
  Age: 67 Year
  Sex: Female

DRUGS (6)
  1. CARLYTENE [Suspect]
     Active Substance: MOXISYLYTE
     Indication: RAYNAUD^S PHENOMENON
     Dosage: UNK UNK,UNK
     Route: 048
     Dates: start: 201601
  2. BISOPROLOL FUMARATE/HYDROCHLOROTHIAZIDE [Suspect]
     Active Substance: BISOPROLOL FUMARATE\HYDROCHLOROTHIAZIDE
     Indication: HYPERTENSION
     Dosage: UNK UNK,UNK
     Route: 048
  3. ASPEGIC NOURRISSONS [Suspect]
     Active Substance: ASPIRIN DL-LYSINE
     Indication: PROPHYLAXIS
     Dosage: 100 MG,QD
     Route: 048
     Dates: start: 201010
  4. LOXEN [NICARDIPINE HYDROCHLORIDE] [Suspect]
     Active Substance: NICARDIPINE HYDROCHLORIDE
     Indication: RAYNAUD^S PHENOMENON
     Dosage: UNK
     Route: 048
     Dates: start: 201601
  5. APROVEL [Suspect]
     Active Substance: IRBESARTAN
     Indication: HYPERTENSION
     Dosage: UNK UNK,UNK
     Route: 048
  6. HYDROXYCARBAMIDE [Suspect]
     Active Substance: HYDROXYUREA
     Indication: POLYCYTHAEMIA VERA
     Dosage: 2 DF,QD
     Route: 048
     Dates: start: 201010

REACTIONS (1)
  - Bowen^s disease [Recovered/Resolved with Sequelae]

NARRATIVE: CASE EVENT DATE: 2016
